FAERS Safety Report 25539125 (Version 1)
Quarter: 2025Q3

REPORT INFORMATION
  Report Type: Spontaneous
  Country: US (occurrence: None)
  Receive Date: 20250709
  Receipt Date: 20250709
  Transmission Date: 20251020
  Serious: No
  Sender: FDA-CTU
  Company Number: None

PATIENT
  Age: 37 Year
  Sex: Male
  Weight: 153 kg

DRUGS (13)
  1. TIRZEPATIDE [Suspect]
     Active Substance: TIRZEPATIDE
     Indication: Obesity
     Dosage: OTHER QUANTITY : .5 TABLET(S);?FREQUENCY : DAILY;?
     Route: 060
  2. Pantoprazole 40mg 1xper day [Concomitant]
  3. bumetanide 2mg 2x per day [Concomitant]
  4. simvastatin 10mg 1x per day [Concomitant]
  5. lisinopril 40mg 1x per day [Concomitant]
  6. citalopram 40mg 1x per day [Concomitant]
  7. mirtazipine 30mg 1x per day [Concomitant]
  8. quetiapine 100mg 1x per day [Concomitant]
  9. acamprosate 2 333mg 3x per day [Concomitant]
  10. propranolol 160mg 2x per day [Concomitant]
  11. alprazolam 1mg 1x per day [Concomitant]
  12. buprenorphine/naloxone 8mg/2 2 strips sublingual 1x per day [Concomitant]
  13. MAGNESIUM CITRATE [Concomitant]
     Active Substance: MAGNESIUM CITRATE

REACTIONS (4)
  - Drug ineffective [None]
  - Product advertising issue [None]
  - Adulterated product [None]
  - Product formulation issue [None]

NARRATIVE: CASE EVENT DATE: 20250615
